FAERS Safety Report 5873961-1 (Version None)
Quarter: 2008Q3

REPORT INFORMATION
  Report Type: 
  Country: None (occurrence: None)
  Receive Date: 20080908
  Receipt Date: 20080903
  Transmission Date: 20090109
  Serious: Yes (Other)
  Sender: FDA-Public Use
  Company Number: GB-MERCK-0809GBR00002

PATIENT
  Age: 88 Year
  Sex: Female
  Weight: 48 kg

DRUGS (6)
  1. FOSAMAX [Suspect]
     Indication: OSTEOPOROSIS POSTMENOPAUSAL
     Route: 048
     Dates: start: 20071010, end: 20080717
  2. AMOROLFINE HYDROCHLORIDE [Concomitant]
     Route: 065
     Dates: start: 20080602
  3. ASPIRIN [Concomitant]
     Route: 065
     Dates: start: 20060123
  4. DERMOVATE [Concomitant]
     Route: 065
     Dates: start: 20080627
  5. FUROSEMIDE [Concomitant]
     Route: 065
     Dates: start: 20050726
  6. RAMIPRIL [Concomitant]
     Route: 065
     Dates: start: 20050711

REACTIONS (2)
  - BLISTER [None]
  - RASH GENERALISED [None]
